FAERS Safety Report 9312584 (Version 1)
Quarter: 2013Q2

REPORT INFORMATION
  Report Type: Spontaneous
  Country: US (occurrence: US)
  Receive Date: 20130528
  Receipt Date: 20130528
  Transmission Date: 20140414
  Serious: Yes (Other)
  Sender: FDA-Public Use
  Company Number: US-GLAXOSMITHKLINE-A0800839A

PATIENT
  Age: 62 Year
  Sex: Male
  Weight: 138.6 kg

DRUGS (1)
  1. AVANDIA [Suspect]
     Indication: TYPE 2 DIABETES MELLITUS
     Dosage: 4MG TWICE PER DAY
     Route: 048
     Dates: start: 20020724, end: 200710

REACTIONS (4)
  - Cardiac failure congestive [Not Recovered/Not Resolved]
  - Coronary artery occlusion [Unknown]
  - Chest pain [Unknown]
  - Dyspnoea [Unknown]
